FAERS Safety Report 21025304 (Version 1)
Quarter: 2022Q2

REPORT INFORMATION
  Report Type: Spontaneous
  Country: FR (occurrence: FR)
  Receive Date: 20220630
  Receipt Date: 20220630
  Transmission Date: 20220721
  Serious: Yes (Hospitalization)
  Sender: FDA-Public Use
  Company Number: FR-Global Blood Therapeutics Inc-FR-GBT-22-00825

PATIENT
  Age: 44 Year
  Sex: Female

DRUGS (3)
  1. OXBRYTA [Suspect]
     Active Substance: VOXELOTOR
     Indication: Product used for unknown indication
     Dates: start: 20211206, end: 20220207
  2. OXBRYTA [Suspect]
     Active Substance: VOXELOTOR
     Dates: start: 20220210, end: 20220227
  3. OXBRYTA [Suspect]
     Active Substance: VOXELOTOR
     Dates: start: 20220317

REACTIONS (2)
  - Acute chest syndrome [Unknown]
  - COVID-19 [Unknown]

NARRATIVE: CASE EVENT DATE: 20220101
